FAERS Safety Report 9962731 (Version 1)
Quarter: 2014Q1

REPORT INFORMATION
  Report Type: Report from Study
  Country: US (occurrence: US)
  Receive Date: 20140305
  Receipt Date: 20140305
  Transmission Date: 20141002
  Serious: No
  Sender: FDA-Public Use
  Company Number: US-ABBVIE-13P-163-1113987-00

PATIENT
  Sex: Male

DRUGS (19)
  1. HUMIRA [Suspect]
     Indication: RHEUMATOID ARTHRITIS
  2. ELIDEL [Concomitant]
     Indication: ECZEMA
     Route: 061
  3. ARAVA [Concomitant]
     Indication: RHEUMATOID ARTHRITIS
  4. PLAQUENIL [Concomitant]
     Indication: RHEUMATOID ARTHRITIS
     Dosage: DAILY
  5. ACYCLOVIR [Concomitant]
     Indication: OPHTHALMIC HERPES ZOSTER
  6. ALLOPURINOL [Concomitant]
     Indication: GOUT
  7. CLONAZEPAM [Concomitant]
     Indication: ANXIETY
  8. CROMOLYN [Concomitant]
     Indication: SEASONAL ALLERGY
     Dosage: OU
  9. GABAPENTIN [Concomitant]
     Indication: NEURALGIA
  10. HYDROCODONE [Concomitant]
     Indication: ARTHRALGIA
     Dosage: 10/650
  11. OMEPRAZOLE [Concomitant]
     Indication: DYSPEPSIA
  12. CORTISONE [Concomitant]
     Indication: ERYTHEMA
     Route: 061
  13. SIMVASTATIN [Concomitant]
     Indication: HYPERCHOLESTEROLAEMIA
  14. ATENOLOL [Concomitant]
     Indication: HYPERTENSION
  15. METAMUCIL [Concomitant]
     Indication: GASTROINTESTINAL MOTILITY DISORDER
     Dosage: DAILY
  16. CALCIUM [Concomitant]
     Indication: PRODUCT USED FOR UNKNOWN INDICATION
     Dosage: DAILY
  17. FISH OIL [Concomitant]
     Indication: PRODUCT USED FOR UNKNOWN INDICATION
     Dosage: DAILY
  18. BABY ASPIRIN [Concomitant]
     Indication: PRODUCT USED FOR UNKNOWN INDICATION
     Dosage: DAILY
  19. RESTASIS [Concomitant]
     Indication: PRODUCT USED FOR UNKNOWN INDICATION
     Dosage: OU

REACTIONS (3)
  - Anorectal discomfort [Not Recovered/Not Resolved]
  - Rectal haemorrhage [Not Recovered/Not Resolved]
  - Eye infection bacterial [Not Recovered/Not Resolved]
